FAERS Safety Report 18569878 (Version 1)
Quarter: 2020Q4

REPORT INFORMATION
  Report Type: Spontaneous
  Country: US (occurrence: US)
  Receive Date: 20201202
  Receipt Date: 20201202
  Transmission Date: 20210114
  Serious: Yes (Hospitalization)
  Sender: FDA-Public Use
  Company Number: None

PATIENT
  Age: 40 Year
  Sex: Male
  Weight: 99 kg

DRUGS (4)
  1. NEULASTA [Suspect]
     Active Substance: PEGFILGRASTIM
     Dates: end: 20201128
  2. IFOSFAMIDE. [Suspect]
     Active Substance: IFOSFAMIDE
     Dates: end: 20201127
  3. TAXOL [Suspect]
     Active Substance: PACLITAXEL
     Dates: end: 20201123
  4. CISPLATIN. [Suspect]
     Active Substance: CISPLATIN
     Dates: end: 20201127

REACTIONS (1)
  - Infection [None]

NARRATIVE: CASE EVENT DATE: 20201130
